FAERS Safety Report 16415008 (Version 1)
Quarter: 2019Q2

REPORT INFORMATION
  Report Type: Spontaneous
  Country: US (occurrence: US)
  Receive Date: 20190611
  Receipt Date: 20190611
  Transmission Date: 20190711
  Serious: No
  Sender: FDA-Public Use
  Company Number: US-SEPTODONT-201804798

PATIENT

DRUGS (2)
  1. ARTICAINE 4% W/EPINEPHRINE [Suspect]
     Active Substance: ARTICAINE HYDROCHLORIDE\EPINEPHRINE BITARTRATE
     Indication: DENTAL LOCAL ANAESTHESIA
     Dosage: THE PROCEDURES REQUIRED 5-6 CARPULES
     Route: 004
     Dates: start: 201807, end: 201808
  2. ARTICAINE 4% W/EPINEPHRINE [Suspect]
     Active Substance: ARTICAINE HYDROCHLORIDE\EPINEPHRINE BITARTRATE
     Indication: DENTAL LOCAL ANAESTHESIA
     Dosage: THE PROCEDURES REQUIRED 5-6 CARPULES
     Route: 004
     Dates: start: 201807, end: 201808

REACTIONS (1)
  - Drug ineffective [Not Recovered/Not Resolved]

NARRATIVE: CASE EVENT DATE: 201807
